FAERS Safety Report 11693629 (Version 2)
Quarter: 2015Q4

REPORT INFORMATION
  Report Type: Report from Study
  Country: US (occurrence: US)
  Receive Date: 20151103
  Receipt Date: 20151109
  Transmission Date: 20160304
  Serious: Yes (Hospitalization)
  Sender: FDA-Public Use
  Company Number: US-PFIZER INC-2015367625

PATIENT
  Age: 83 Year
  Sex: Male
  Weight: 79 kg

DRUGS (9)
  1. HYDRALAZINE [Suspect]
     Active Substance: HYDRALAZINE HYDROCHLORIDE
  2. AMIODARONE HCL [Suspect]
     Active Substance: AMIODARONE HYDROCHLORIDE
     Dosage: 200 MG, ONCE DAILY
     Route: 048
  3. ISOSORBIDE. [Suspect]
     Active Substance: ISOSORBIDE
  4. PREDNISONE. [Suspect]
     Active Substance: PREDNISONE
     Indication: PROSTATE CANCER METASTATIC
     Dosage: UNK
     Dates: start: 20140826, end: 20150419
  5. DILTIAZEM [Suspect]
     Active Substance: DILTIAZEM
  6. NORVASC [Suspect]
     Active Substance: AMLODIPINE BESYLATE
  7. ENZALUTAMIDE [Suspect]
     Active Substance: ENZALUTAMIDE
     Indication: PROSTATE CANCER METASTATIC
     Dosage: UNK
     Dates: start: 20140826, end: 20150419
  8. ABIRATERONE ACETATE [Suspect]
     Active Substance: ABIRATERONE ACETATE
     Indication: PROSTATE CANCER METASTATIC
     Dosage: UNK
     Dates: start: 20140826, end: 20150419
  9. FUROSEMIDE. [Suspect]
     Active Substance: FUROSEMIDE

REACTIONS (4)
  - Pleural effusion [Recovering/Resolving]
  - Chest pain [Recovering/Resolving]
  - Cardiac failure [Recovering/Resolving]
  - Pulmonary oedema [Recovering/Resolving]

NARRATIVE: CASE EVENT DATE: 20150116
